FAERS Safety Report 6778306-0 (Version None)
Quarter: 2010Q2

REPORT INFORMATION
  Report Type: 
  Country: None (occurrence: None)
  Receive Date: 20100618
  Receipt Date: 20100607
  Transmission Date: 20101027
  Serious: Yes (Other)
  Sender: FDA-Public Use
  Company Number: US-SANOFI-AVENTIS-2010SA014890

PATIENT
  Age: 56 Year
  Sex: Male
  Weight: 163.29 kg

DRUGS (14)
  1. LANTUS [Suspect]
     Indication: TYPE 2 DIABETES MELLITUS
     Dosage: DOSE:25 UNIT(S)
     Route: 058
     Dates: start: 20100227, end: 20100227
  2. LANTUS [Suspect]
     Dosage: DOSE:25 UNIT(S)
     Route: 058
     Dates: start: 20100227, end: 20100227
  3. LANTUS [Suspect]
     Dosage: DOSE:20 UNIT(S)
     Route: 058
     Dates: start: 20100224, end: 20100226
  4. LANTUS [Suspect]
     Dosage: DOSE:20 UNIT(S)
     Route: 058
     Dates: start: 20100224, end: 20100226
  5. LANTUS [Suspect]
     Dosage: DOSE:26 UNIT(S)
     Route: 058
     Dates: start: 20100228, end: 20100228
  6. LANTUS [Suspect]
     Dosage: DOSE:28 UNIT(S)
     Route: 058
     Dates: start: 20100301, end: 20100301
  7. LANTUS [Suspect]
     Dosage: DOSE:26 UNIT(S)
     Route: 058
     Dates: start: 20100228, end: 20100228
  8. LANTUS [Suspect]
     Dosage: DOSE:28 UNIT(S)
     Route: 058
     Dates: start: 20100301, end: 20100301
  9. SOLOSTAR [Suspect]
     Dates: start: 20100225
  10. SOLOSTAR [Suspect]
     Dates: start: 20100225
  11. AVAPRO [Concomitant]
     Indication: HYPERTENSION
     Dates: start: 20030101
  12. ASPIRIN [Concomitant]
     Indication: CORONARY ARTERY DISEASE
     Dates: start: 20010101
  13. CRESTOR [Concomitant]
     Dosage: EVERY OTHER DAY
     Dates: start: 20080101
  14. NEXIUM /UNK/ [Concomitant]
     Dates: start: 20010101

REACTIONS (4)
  - ARRHYTHMIA [None]
  - BLOOD GLUCOSE INCREASED [None]
  - DRUG INEFFECTIVE [None]
  - SYNCOPE [None]
